FAERS Safety Report 6379759-2 (Version None)
Quarter: 2009Q3

REPORT INFORMATION
  Report Type: 
  Country: None (occurrence: None)
  Receive Date: 20090928
  Receipt Date: 20090924
  Transmission Date: 20100115
  Serious: Yes (Hospitalization)
  Sender: FDA-Public Use
  Company Number: GB-SANOFI-SYNTHELABO-F01200900904

PATIENT
  Sex: Male
  Weight: 103.2 kg

DRUGS (6)
  1. PARACETAMOL [Concomitant]
     Route: 065
  2. LEUCOVORIN CALCIUM [Suspect]
     Route: 041
     Dates: start: 20090820, end: 20090820
  3. FLUOROURACIL [Suspect]
     Route: 042
     Dates: start: 20090820, end: 20090820
  4. TRAMADOL HCL [Concomitant]
  5. AFLIBERCEPT [Suspect]
     Route: 042
     Dates: start: 20090820, end: 20090820
  6. OXALIPLATIN [Suspect]
     Indication: COLORECTAL CANCER METASTATIC
     Route: 041
     Dates: start: 20090820, end: 20090820

REACTIONS (1)
  - FOLLICULITIS [None]
